FAERS Safety Report 20680071 (Version 3)
Quarter: 2022Q4

REPORT INFORMATION
  Report Type: Report from Study
  Country: GB (occurrence: GB)
  Receive Date: 20220406
  Receipt Date: 20221228
  Transmission Date: 20230113
  Serious: Yes (Hospitalization, Other)
  Sender: FDA-Public Use
  Company Number: GB-TAKEDA-GB201516718

PATIENT
  Sex: Male

DRUGS (22)
  1. IDURSULFASE [Suspect]
     Active Substance: IDURSULFASE
     Indication: Mucopolysaccharidosis II
     Dosage: 0.5 MILLIGRAM/KILOGRAM, 1/WEEK
     Route: 042
     Dates: start: 20070404
  2. IDURSULFASE [Suspect]
     Active Substance: IDURSULFASE
     Dosage: 0.45 MILLIGRAM/KILOGRAM, Q2WEEKS
     Route: 042
     Dates: start: 20120419
  3. IDURSULFASE [Suspect]
     Active Substance: IDURSULFASE
     Dosage: 0.5 MILLIGRAM/KILOGRAM, 1/WEEK
     Route: 042
     Dates: start: 20170309
  4. ENALAPRIL [Concomitant]
     Active Substance: ENALAPRIL
     Indication: Aortic valve replacement
     Dosage: UNK
     Route: 048
     Dates: end: 20061212
  5. CAPTOPRIL [Concomitant]
     Active Substance: CAPTOPRIL
     Indication: Ventricular dysfunction
     Dosage: UNK
     Route: 048
     Dates: start: 20061111, end: 20130326
  6. FUROSEMIDE [Concomitant]
     Active Substance: FUROSEMIDE
     Indication: Aortic valve replacement
     Dosage: UNK
     Route: 048
     Dates: start: 20061112, end: 20130326
  7. SPIRONOLACTONE [Concomitant]
     Active Substance: SPIRONOLACTONE
     Indication: Aortic valve replacement
     Dosage: UNK
     Route: 048
     Dates: start: 20061112, end: 20130326
  8. IBUPROFEN [Concomitant]
     Active Substance: IBUPROFEN
     Indication: Procedural pain
     Dosage: UNK
     Route: 048
     Dates: start: 20061112, end: 20061112
  9. ACETAMINOPHEN [Concomitant]
     Active Substance: ACETAMINOPHEN
     Indication: Procedural pain
     Dosage: UNK
     Route: 048
     Dates: start: 20061112, end: 20061112
  10. CHLORPHENIRAMINE MALEATE [Concomitant]
     Active Substance: CHLORPHENIRAMINE MALEATE
     Indication: Premedication
     Dosage: UNK
     Route: 048
     Dates: start: 20070404, end: 20070404
  11. HYDROCORTISONE [Concomitant]
     Active Substance: HYDROCORTISONE
     Indication: Adverse event
     Dosage: UNK
     Route: 042
     Dates: start: 20070523, end: 20070523
  12. AMPICILLIN [Concomitant]
     Active Substance: AMPICILLIN
     Indication: Prophylaxis
     Dosage: UNK
     Route: 042
     Dates: start: 20070607, end: 2007
  13. CETIRIZINE [Concomitant]
     Active Substance: CETIRIZINE HYDROCHLORIDE
     Indication: Diarrhoea
     Dosage: UNK
     Route: 048
     Dates: start: 20100217, end: 20100623
  14. CROMOLYN SODIUM [Concomitant]
     Active Substance: CROMOLYN SODIUM
     Indication: Diarrhoea
     Dosage: UNK
     Route: 048
     Dates: start: 20100217, end: 20100623
  15. LOPERAMIDE [Concomitant]
     Active Substance: LOPERAMIDE
     Indication: Diarrhoea
     Dosage: UNK
     Route: 048
     Dates: start: 20111116, end: 2012
  16. LUMIGAN [Concomitant]
     Active Substance: BIMATOPROST
     Indication: Intraocular pressure increased
     Dosage: UNK
     Route: 061
     Dates: start: 20111117, end: 20150924
  17. FLUCLOXACILLIN [Concomitant]
     Active Substance: FLUCLOXACILLIN
     Indication: Device related infection
     Dosage: UNK
     Route: 042
     Dates: start: 20120809, end: 20120809
  18. CLOBETASOL [Concomitant]
     Active Substance: CLOBETASOL
     Indication: Phimosis
     Dosage: UNK
     Route: 061
     Dates: start: 20150922, end: 20151020
  19. TRAMADOL [Concomitant]
     Active Substance: TRAMADOL
     Indication: Pain
     Dosage: UNK
     Route: 048
     Dates: start: 20160119, end: 20160126
  20. HEPARIN [Concomitant]
     Active Substance: HEPARIN SODIUM
     Indication: Anticoagulant therapy
     Dosage: UNK
     Route: 042
     Dates: start: 20170302, end: 20170308
  21. WARFARIN [Concomitant]
     Active Substance: WARFARIN
     Indication: Coagulopathy
     Dosage: UNK
     Route: 048
     Dates: start: 20170305
  22. PROPRANOLOL HYDROCHLORIDE [Concomitant]
     Active Substance: PROPRANOLOL HYDROCHLORIDE
     Indication: Postoperative hypertension
     Dosage: UNK
     Route: 048
     Dates: start: 20170305, end: 20170828

REACTIONS (2)
  - Staphylococcal infection [Recovered/Resolved]
  - Catheter site infection [Recovered/Resolved]

NARRATIVE: CASE EVENT DATE: 20120729
